FAERS Safety Report 21177433 (Version 1)
Quarter: 2022Q3

REPORT INFORMATION
  Report Type: Spontaneous
  Country: AU (occurrence: AU)
  Receive Date: 20220805
  Receipt Date: 20220805
  Transmission Date: 20221027
  Serious: Yes (Other)
  Sender: FDA-Public Use
  Company Number: AU-BAYER-2022A108802

PATIENT
  Age: 19 Year
  Sex: Female

DRUGS (3)
  1. NASONEX [Suspect]
     Active Substance: MOMETASONE FUROATE
     Indication: Rhinitis allergic
     Dosage: UNK, SPRAY, METERED
  2. ALBUTEROL [Concomitant]
     Active Substance: ALBUTEROL
     Dosage: UNK
  3. SYMBICORT [Concomitant]
     Active Substance: BUDESONIDE\FORMOTEROL FUMARATE DIHYDRATE
     Dosage: UNK

REACTIONS (13)
  - Eosinophilic granulomatosis with polyangiitis [Unknown]
  - Pulmonary artery thrombosis [Unknown]
  - Joint swelling [Unknown]
  - Arthralgia [Unknown]
  - Musculoskeletal discomfort [Unknown]
  - Petechiae [Unknown]
  - Influenza like illness [Recovered/Resolved]
  - Headache [Unknown]
  - Pyrexia [Unknown]
  - Myalgia [Unknown]
  - Rash [Unknown]
  - Inflammatory marker increased [Unknown]
  - Electrocardiogram abnormal [Unknown]
